FAERS Safety Report 6154966-2 (Version None)
Quarter: 2009Q2

REPORT INFORMATION
  Report Type: 
  Country: None (occurrence: None)
  Receive Date: 20090410
  Receipt Date: 20090326
  Transmission Date: 20091009
  Serious: Yes (Hospitalization)
  Sender: FDA-Public Use
  Company Number: GXKR2009ES03940

PATIENT
  Age: 55 Year
  Sex: Female

DRUGS (5)
  1. DEXAMETHASONE [Suspect]
     Indication: BREAST CANCER
     Dosage: 16 MG/DAY
  2. DOCETAXEL [Suspect]
     Indication: BREAST CANCER
     Dosage: 75 MG/M2
  3. EPIRUBICIN [Suspect]
     Indication: BREAST CANCER
     Dosage: 75 MG/M2
  4. CYCLOPHOSPHAMIDE [Suspect]
     Indication: BREAST CANCER
     Dosage: 500 MG/M2
  5. GRANULOCYTE COLONY STIMULATING FACTOR (GRANULOCYTE COLONY STIMULATING [Suspect]
     Indication: BREAST CANCER

REACTIONS (20)
  - ABDOMINAL PAIN [None]
  - CELLULITIS GANGRENOUS [None]
  - CHOLECYSTITIS INFECTIVE [None]
  - CLOSTRIDIAL INFECTION [None]
  - COLITIS [None]
  - DIARRHOEA [None]
  - ENTEROCOLITIS [None]
  - HAEMODIALYSIS [None]
  - HAEMODYNAMIC INSTABILITY [None]
  - INTESTINAL ANASTOMOSIS [None]
  - LEUKOPENIA [None]
  - NAUSEA [None]
  - NECROTISING FASCIITIS [None]
  - NEUTROPENIA [None]
  - PAIN [None]
  - PNEUMATOSIS [None]
  - PYREXIA [None]
  - SALPINGO-OOPHORECTOMY UNILATERAL [None]
  - SUPERINFECTION BACTERIAL [None]
  - VOMITING [None]
